FAERS Safety Report 8281668-9 (Version None)
Quarter: 2012Q2

REPORT INFORMATION
  Report Type: 
  Country: None (occurrence: None)
  Receive Date: 20120413
  Receipt Date: 20120404
  Transmission Date: 20120825
  Serious: Yes (Hospitalization)
  Sender: FDA-Public Use
  Company Number: SE-JNJFOC-20120402277

PATIENT
  Age: 63 Year
  Sex: Female

DRUGS (1)
  1. REMICADE [Suspect]
     Indication: ANKYLOSING SPONDYLITIS
     Route: 042
     Dates: start: 20100617, end: 20120124

REACTIONS (4)
  - BLOOD CHOLESTEROL INCREASED [None]
  - SPEECH DISORDER [None]
  - VIITH NERVE PARALYSIS [None]
  - BLOOD PRESSURE INCREASED [None]
